FAERS Safety Report 14269499 (Version 2)
Quarter: 2017Q4

REPORT INFORMATION
  Report Type: Spontaneous
  Country: US (occurrence: US)
  Receive Date: 20171211
  Receipt Date: 20171229
  Transmission Date: 20180321
  Serious: Yes (Other)
  Sender: FDA-Public Use
  Company Number: US-PTC THERAPEUTICS, INC.-US-2017PTC001525

PATIENT

DRUGS (1)
  1. EMFLAZA [Suspect]
     Active Substance: DEFLAZACORT
     Indication: DUCHENNE MUSCULAR DYSTROPHY
     Dosage: 36 MG, QD
     Route: 048
     Dates: start: 20170906, end: 20171204

REACTIONS (2)
  - Papilloedema [Unknown]
  - Weight increased [Unknown]

NARRATIVE: CASE EVENT DATE: 2017
